FAERS Safety Report 14495225 (Version 1)
Quarter: 2018Q1

REPORT INFORMATION
  Report Type: Spontaneous
  Country: CA (occurrence: CA)
  Receive Date: 20180206
  Receipt Date: 20180206
  Transmission Date: 20180509
  Serious: Yes (Life-Threatening, Hospitalization, Disabling, Other)
  Sender: FDA-Public Use
  Company Number: CA-SUNOVION-2018SUN000440

PATIENT
  Age: 59 Year
  Weight: 73.16 kg

DRUGS (1)
  1. LATUDA [Suspect]
     Active Substance: LURASIDONE HYDROCHLORIDE
     Indication: BIPOLAR DISORDER
     Dosage: 1 TABLET EVERY DAY
     Route: 048

REACTIONS (14)
  - Coordination abnormal [Not Recovered/Not Resolved]
  - Amnesia [Not Recovered/Not Resolved]
  - Chest pain [Not Recovered/Not Resolved]
  - Computerised tomogram abnormal [Not Recovered/Not Resolved]
  - Thrombosis [Not Recovered/Not Resolved]
  - Cerebrovascular accident [Not Recovered/Not Resolved]
  - Executive dysfunction [Not Recovered/Not Resolved]
  - Dyspnoea [Not Recovered/Not Resolved]
  - Hemiparesis [Not Recovered/Not Resolved]
  - Hypoaesthesia [Not Recovered/Not Resolved]
  - Migraine [Not Recovered/Not Resolved]
  - Speech disorder [Not Recovered/Not Resolved]
  - Neurological symptom [Not Recovered/Not Resolved]
  - Oxygen therapy [Not Recovered/Not Resolved]
